FAERS Safety Report 15613066 (Version 2)
Quarter: 2018Q4

REPORT INFORMATION
  Report Type: Spontaneous
  Country: IL (occurrence: IL)
  Receive Date: 20181113
  Receipt Date: 20181204
  Transmission Date: 20190205
  Serious: Yes (Hospitalization, Other)
  Sender: FDA-Public Use
  Company Number: IL-ABBVIE-18K-082-2549648-00

PATIENT
  Age: 4 Year
  Sex: Male

DRUGS (2)
  1. HUMIRA [Suspect]
     Active Substance: ADALIMUMAB
     Indication: JUVENILE IDIOPATHIC ARTHRITIS
     Route: 058
     Dates: start: 201805
  2. HUMIRA [Suspect]
     Active Substance: ADALIMUMAB
     Indication: UVEITIS

REACTIONS (8)
  - Lung disorder [Unknown]
  - Hepatomegaly [Recovering/Resolving]
  - Blood count abnormal [Unknown]
  - Aspiration bone marrow abnormal [Unknown]
  - Leukaemia [Unknown]
  - Splenomegaly [Unknown]
  - Lymphoma [Unknown]
  - Q fever [Unknown]

NARRATIVE: CASE EVENT DATE: 2018
